FAERS Safety Report 13841558 (Version 1)
Quarter: 2017Q3

REPORT INFORMATION
  Report Type: Spontaneous
  Country: GB (occurrence: GB)
  Receive Date: 20170807
  Receipt Date: 20170807
  Transmission Date: 20171127
  Serious: Yes (Death, Other)
  Sender: FDA-Public Use
  Company Number: GB-BAUSCH-BL-2017-022994

PATIENT
  Age: 53 Year
  Sex: Male

DRUGS (3)
  1. DIAZEPAM. [Suspect]
     Active Substance: DIAZEPAM
     Indication: EPILEPSY
     Dosage: TOTAL OF 10 MG
     Route: 054
  2. ISONIAZID. [Suspect]
     Active Substance: ISONIAZID
     Indication: PRODUCT USED FOR UNKNOWN INDICATION
     Route: 065
  3. DIAZEPAM. [Suspect]
     Active Substance: DIAZEPAM
     Route: 042

REACTIONS (12)
  - Disseminated intravascular coagulation [Unknown]
  - Hyperkalaemia [Recovered/Resolved]
  - Tachycardia [Not Recovered/Not Resolved]
  - Haematemesis [Unknown]
  - Crepitations [Unknown]
  - Toxicity to various agents [Fatal]
  - Loss of consciousness [Unknown]
  - Hyperpyrexia [Recovering/Resolving]
  - Metabolic acidosis [Unknown]
  - Prescription drug used without a prescription [Unknown]
  - Hypotension [Unknown]
  - Drug ineffective [Unknown]
